FAERS Safety Report 5093605-9 (Version None)
Quarter: 2006Q3

REPORT INFORMATION
  Report Type: 
  Country: None (occurrence: None)
  Receive Date: 20060829
  Receipt Date: 20060817
  Transmission Date: 20061208
  Serious: Yes (Other)
  Sender: FDA-Public Use
  Company Number: 2006PV019646

PATIENT
  Age: 48 Year
  Sex: Female
  Weight: 154.223 kg

DRUGS (6)
  1. BYETTA [Suspect]
     Indication: DIABETES MELLITUS NON-INSULIN-DEPENDENT
     Dosage: 10 MCG; BID;SC; 5 MCG; BID; SC
     Route: 058
     Dates: start: 20060601, end: 20060701
  2. BYETTA [Suspect]
     Indication: DIABETES MELLITUS NON-INSULIN-DEPENDENT
     Dosage: 10 MCG; BID;SC; 5 MCG; BID; SC
     Route: 058
     Dates: start: 20060701
  3. LANTUS [Suspect]
     Dosage: 30 UNITS QAM; SC;  40 UNITS; QAM; SC
     Route: 058
     Dates: end: 20060731
  4. LANTUS [Suspect]
     Dosage: 30 UNITS QAM; SC;  40 UNITS; QAM; SC
     Route: 058
     Dates: start: 20060731
  5. HUMALOG [Suspect]
     Indication: DIABETES MELLITUS NON-INSULIN-DEPENDENT
     Dosage: PRN; SC
     Route: 058
  6. VERAPAMIL [Concomitant]

REACTIONS (10)
  - BLOOD GLUCOSE DECREASED [None]
  - CYSTITIS [None]
  - DECREASED APPETITE [None]
  - HYPOTHERMIA [None]
  - LIBIDO INCREASED [None]
  - LOSS OF CONSCIOUSNESS [None]
  - METRORRHAGIA [None]
  - OILY SKIN [None]
  - THERAPEUTIC RESPONSE UNEXPECTED [None]
  - WEIGHT DECREASED [None]
